FAERS Safety Report 5112623-5 (Version None)
Quarter: 2006Q3

REPORT INFORMATION
  Report Type: 
  Country: None (occurrence: None)
  Receive Date: 20060922
  Receipt Date: 20060913
  Transmission Date: 20061208
  Serious: Yes (Hospitalization, Other)
  Sender: FDA-Public Use
  Company Number: US-JNJFOC-20060603714

PATIENT
  Sex: Female
  Weight: 52.62 kg

DRUGS (4)
  1. REMICADE [Suspect]
  2. REMICADE [Suspect]
  3. REMICADE [Suspect]
     Indication: RHEUMATOID ARTHRITIS
  4. METHOTREXATE [Concomitant]

REACTIONS (5)
  - BRONCHIECTASIS [None]
  - FATIGUE [None]
  - LOWER RESPIRATORY TRACT INFLAMMATION [None]
  - LUNG INFILTRATION [None]
  - POSTNASAL DRIP [None]
